FAERS Safety Report 4707305-5 (Version None)
Quarter: 2005Q3

REPORT INFORMATION
  Report Type: 
  Country: None (occurrence: None)
  Receive Date: 20050701
  Receipt Date: 20050701
  Transmission Date: 20060218
  Serious: Yes (Death)
  Sender: FDA-Public Use
  Company Number: None

PATIENT
  Age: 81 Year
  Sex: Male
  Weight: 80.5 kg

DRUGS (16)
  1. ENOXAPARIN SODIUM [Suspect]
     Indication: ANTICOAGULANT THERAPY
     Dosage: 80 MG Q12 HR SQ
     Route: 058
     Dates: start: 20050502
  2. ENOXAPARIN SODIUM [Suspect]
     Indication: ATRIAL FIBRILLATION
     Dosage: 80 MG Q12 HR SQ
     Route: 058
     Dates: start: 20050502
  3. WARFARIN [Suspect]
     Indication: ANTICOAGULANT THERAPY
     Dosage: 5 MG DAILY ORAL
     Route: 048
     Dates: start: 20050502
  4. WARFARIN [Suspect]
     Indication: ATRIAL FIBRILLATION
     Dosage: 5 MG DAILY ORAL
     Route: 048
     Dates: start: 20050502
  5. ACARBOSE [Concomitant]
  6. ACETAMINOPHEN [Concomitant]
  7. BRIMONIDINE TARTRATE [Concomitant]
  8. CLOPIDOGREL BISULFATE [Concomitant]
  9. DOCUSATE NA [Concomitant]
  10. DOXAZOSIN MESYLATE [Concomitant]
  11. GLIPIZIDE [Concomitant]
  12. LISINOPRIL [Concomitant]
  13. OMEPRAZOLE [Concomitant]
  14. ROSIGLITAZONE MALEATE [Concomitant]
  15. TRAVOPROST [Concomitant]
  16. SIMETHICONE [Concomitant]

REACTIONS (5)
  - CONVULSION [None]
  - FALL [None]
  - INTRAVENTRICULAR HAEMORRHAGE [None]
  - MENTAL STATUS CHANGES [None]
  - SUBDURAL HAEMATOMA [None]
